FAERS Safety Report 25514558 (Version 1)
Quarter: 2025Q3

REPORT INFORMATION
  Report Type: Spontaneous
  Country: US (occurrence: US)
  Receive Date: 20250703
  Receipt Date: 20250703
  Transmission Date: 20251021
  Serious: No
  Sender: RADIUS PHARM
  Company Number: US-RADIUS HEALTH INC.-2025US000364

PATIENT
  Sex: Female
  Weight: 66.667 kg

DRUGS (1)
  1. TYMLOS [Suspect]
     Active Substance: ABALOPARATIDE
     Indication: Senile osteoporosis
     Route: 058
     Dates: start: 20250106

REACTIONS (3)
  - Headache [Not Recovered/Not Resolved]
  - Feeding disorder [Unknown]
  - Pain in extremity [Unknown]
